FAERS Safety Report 19030718 (Version 1)
Quarter: 2021Q1

REPORT INFORMATION
  Report Type: Spontaneous
  Country: US (occurrence: US)
  Receive Date: 20210319
  Receipt Date: 20210319
  Transmission Date: 20210420
  Serious: No
  Sender: FDA-Public Use
  Company Number: NVSC2021US060008

PATIENT
  Sex: Female

DRUGS (1)
  1. BRIMONIDINE TARTARATE [Suspect]
     Active Substance: BRIMONIDINE TARTRATE
     Indication: PRODUCT USED FOR UNKNOWN INDICATION
     Dosage: UNK
     Route: 065

REACTIONS (5)
  - Lethargy [Unknown]
  - Dry mouth [Unknown]
  - Eye irritation [Recovered/Resolved]
  - Hypertension [Unknown]
  - Fatigue [Unknown]
